FAERS Safety Report 12422524 (Version 1)
Quarter: 2016Q2

REPORT INFORMATION
  Report Type: Spontaneous
  Country: GB (occurrence: GB)
  Receive Date: 20160601
  Receipt Date: 20160601
  Transmission Date: 20160815
  Serious: Yes (Hospitalization)
  Sender: FDA-Public Use
  Company Number: GB-BAUSCH-BL-2016-012642

PATIENT
  Age: 4 Year
  Sex: Female
  Weight: 14.9 kg

DRUGS (1)
  1. MINIMS CYCLOPENTOLATE HYDROCHLORIDE 1.0%  W/V EYE DROPS, SOLUTION [Suspect]
     Active Substance: CYCLOPENTOLATE HYDROCHLORIDE
     Indication: PUPIL DILATION PROCEDURE
     Dosage: AS NECESSARY
     Route: 047
     Dates: start: 20160516, end: 20160516

REACTIONS (8)
  - Agitation [Recovered/Resolved]
  - Hyperaesthesia [Recovered/Resolved]
  - Nervousness [Recovered/Resolved]
  - Confusional state [Recovered/Resolved]
  - Flushing [Recovered/Resolved]
  - Feeling abnormal [Recovered/Resolved]
  - Hallucination [Recovered/Resolved]
  - Emotional distress [Recovered/Resolved]

NARRATIVE: CASE EVENT DATE: 20160516
